FAERS Safety Report 9337336 (Version 1)
Quarter: 2013Q2

REPORT INFORMATION
  Report Type: Spontaneous
  Country: US (occurrence: US)
  Receive Date: 20130607
  Receipt Date: 20130607
  Transmission Date: 20140414
  Serious: Yes (Death)
  Sender: FDA-Public Use
  Company Number: US-GLAXOSMITHKLINE-A1025867A

PATIENT
  Age: 30 Year
  Sex: Male

DRUGS (4)
  1. VOTRIENT [Suspect]
     Indication: NEOPLASM MALIGNANT
     Dosage: 800MG PER DAY
     Route: 048
     Dates: start: 20121107
  2. LISINOPRIL [Concomitant]
  3. DILAUDID [Concomitant]
  4. OXYCONTIN [Concomitant]

REACTIONS (1)
  - Death [Fatal]
